FAERS Safety Report 6384327-2 (Version None)
Quarter: 2009Q3

REPORT INFORMATION
  Report Type: 
  Country: None (occurrence: None)
  Receive Date: 20090929
  Receipt Date: 20090917
  Transmission Date: 20100115
  Serious: Yes (Disabling)
  Sender: FDA-Public Use
  Company Number: 2009EU003572

PATIENT
  Age: 59 Year
  Sex: Male

DRUGS (8)
  1. TACROLIMUS [Suspect]
     Indication: RENAL TRANSPLANT
     Dosage: BID, ORAL
     Route: 048
  2. ALFACALCIDOL (ALFACALCIDOL) [Concomitant]
  3. AMLODIPINE [Concomitant]
  4. ASPIRIN [Concomitant]
  5. ATENOLOL [Concomitant]
  6. DOXAZOSIN MESYLATE [Concomitant]
  7. MYCOPHENOLATE MOFETIL [Concomitant]
  8. PREDNISOLONE [Concomitant]

REACTIONS (5)
  - BALANCE DISORDER [None]
  - BLOOD CALCIUM DECREASED [None]
  - GRIP STRENGTH DECREASED [None]
  - MYOCLONUS [None]
  - NEUROPATHY PERIPHERAL [None]
